FAERS Safety Report 6250882-6 (Version None)
Quarter: 2009Q2

REPORT INFORMATION
  Report Type: 
  Country: None (occurrence: None)
  Receive Date: 20090630
  Receipt Date: 20090417
  Transmission Date: 20091009
  Serious: No
  Sender: FDA-Public Use
  Company Number: US-BAUSCH-2009BL001765

PATIENT
  Age: 45 Year
  Sex: Female

DRUGS (3)
  1. ALAWAY [Suspect]
     Indication: SEASONAL ALLERGY
     Route: 047
     Dates: start: 20090301
  2. LOTEMAX [Concomitant]
     Indication: OCULAR HYPERAEMIA
     Route: 047
  3. OPTIVE [Concomitant]
     Indication: DRY EYE
     Route: 047

REACTIONS (1)
  - EYE HAEMORRHAGE [None]
